FAERS Safety Report 25020059 (Version 3)
Quarter: 2025Q1

REPORT INFORMATION
  Report Type: Spontaneous
  Country: DE (occurrence: DE)
  Receive Date: 20250227
  Receipt Date: 20250328
  Transmission Date: 20250409
  Serious: Yes (Hospitalization, Other)
  Sender: BOEHRINGER INGELHEIM
  Company Number: DE-KRKA-DE2025K01984SPO

PATIENT
  Age: 83 Year
  Sex: Male
  Weight: 76 kg

DRUGS (14)
  1. JARDIANCE [Suspect]
     Active Substance: EMPAGLIFLOZIN
     Indication: Diabetes mellitus
     Dosage: 10 MILLIGRAM, PM (10 MG, 1X PER DAY LATE IN THE EVENING)
  2. JARDIANCE [Suspect]
     Active Substance: EMPAGLIFLOZIN
     Indication: Tachycardia
  3. JARDIANCE [Suspect]
     Active Substance: EMPAGLIFLOZIN
     Indication: Cardiovascular event prophylaxis
  4. CANDESARTAN [Suspect]
     Active Substance: CANDESARTAN
     Indication: Dizziness
     Dosage: 4 MILLIGRAM, BID (4 MG, 2X PER DAY, ONE HALF IN THE MORNING THE OTHER IN THE EVENING)
     Dates: start: 2020
  5. CANDESARTAN [Suspect]
     Active Substance: CANDESARTAN
     Indication: Hypertension
  6. CANDESARTAN [Suspect]
     Active Substance: CANDESARTAN
     Indication: Thrombosis
  7. BISOPROLOL [Suspect]
     Active Substance: BISOPROLOL
     Indication: Tachycardia
     Dosage: 5 MILLIGRAM, BID (5 MG, 2X PER DAY)
  8. ATORVASTATIN\EZETIMIBE [Suspect]
     Active Substance: ATORVASTATIN\EZETIMIBE
     Indication: Dizziness
     Dosage: 1 DOSAGE FORM, PM (1 DOSAGE FORM, 1X PER DAY LATE IN THE EVENING)
  9. ATORVASTATIN\EZETIMIBE [Suspect]
     Active Substance: ATORVASTATIN\EZETIMIBE
     Indication: Thrombosis
     Dosage: 1 DOSAGE FORM, PM (1 DOSAGE FORM, 1X PER DAY LATE IN THE EVENING)
  10. EPLERENONE [Suspect]
     Active Substance: EPLERENONE
     Indication: Dizziness
     Dosage: 25 MILLIGRAM, QD (25 MG, 1X PER DAY IN THE MORNING)
  11. EPLERENONE [Suspect]
     Active Substance: EPLERENONE
     Indication: Hypertension
     Dosage: 25 MILLIGRAM, QD (25 MG, 1X PER DAY IN THE MORNING)
  12. EPLERENONE [Suspect]
     Active Substance: EPLERENONE
     Indication: Tachycardia
  13. EPLERENONE [Suspect]
     Active Substance: EPLERENONE
     Indication: Thrombosis
  14. ELIQUIS [Suspect]
     Active Substance: APIXABAN
     Indication: Product used for unknown indication
     Dosage: 5 MILLIGRAM, BID (5 MG, 2X PER DAY (1-0-1))

REACTIONS (5)
  - Pulmonary oedema [Recovered/Resolved]
  - Dyspnoea [Unknown]
  - Tendon rupture [Unknown]
  - Hypoacusis [Not Recovered/Not Resolved]
  - Inappropriate schedule of product administration [Not Recovered/Not Resolved]

NARRATIVE: CASE EVENT DATE: 20220506
